FAERS Safety Report 18573912 (Version 1)
Quarter: 2020Q4

REPORT INFORMATION
  Report Type: Spontaneous
  Country: US (occurrence: US)
  Receive Date: 20201203
  Receipt Date: 20201203
  Transmission Date: 20210114
  Serious: No
  Sender: FDA-Public Use
  Company Number: US-TEVA-2020-US-1855250

PATIENT
  Sex: Female

DRUGS (1)
  1. ATENOLOL. [Suspect]
     Active Substance: ATENOLOL
     Route: 065

REACTIONS (3)
  - Blood pressure increased [Unknown]
  - Heart rate increased [Unknown]
  - Product substitution issue [Unknown]
